FAERS Safety Report 9512133 (Version 1)
Quarter: 2013Q1

REPORT INFORMATION
  Report Type: Spontaneous
  Country: US (occurrence: None)
  Receive Date: 20130305
  Receipt Date: 20130305
  Transmission Date: 20140127
  Serious: Yes (Other)
  Sender: FDA-Public Use
  Company Number: 163-21880-11114079

PATIENT
  Age: 82 Year
  Sex: Male
  Weight: 87.64 kg

DRUGS (13)
  1. REVLIMID [Suspect]
     Indication: PLASMA CELL MYELOMA
     Dosage: 10 MG, DAILY FOR 14 DAYS 7 DAYS OFF, PO
     Route: 048
     Dates: start: 20111123, end: 20111128
  2. BORTEZOMIB (BORTEZOMIB) (UNKNOWN) [Concomitant]
  3. DEXMETHASONE (DEXAMETHASONE) (4 MILLIGRAM, UNKNOWN) [Concomitant]
  4. ACYCLOVIR (ACICLOVIR) (CAPSULES) [Concomitant]
  5. AMLODIPINE BESYLATE (AMLODIPINE BESILATE) (TABLETS)? [Concomitant]
  6. CALCIUM WITH VITAMIN D (CALCIUM WITH VITAMIN D) (TABLETS) [Concomitant]
  7. CARVEDILOL (CARVEDILOL) (TABLETS) [Concomitant]
  8. COUMADIN (WARFARIN SODIUM) (TABLETS0 [Concomitant]
  9. IRON (IRON) (TABLETS) [Concomitant]
  10. LOSARTAN-HYDROCHLOROTHIAZIDE (HYZAAR) (TABLETS) [Concomitant]
  11. PRESERVISION (PRESERVISION EYE VITAMIN AND MINERAL SUPPL.) (TABLETS)? [Concomitant]
  12. BISPHOSPHONATES (BISPHOSPHONATES) (UNKNOWN) [Concomitant]
  13. MUCINEX (GUAIFENESIN) (TABLETS) [Concomitant]

REACTIONS (3)
  - Rash pruritic [None]
  - Swelling face [None]
  - Diarrhoea [None]
